FAERS Safety Report 21642542 (Version 1)
Quarter: 2022Q4

REPORT INFORMATION
  Report Type: Spontaneous
  Country: US (occurrence: None)
  Receive Date: 20221125
  Receipt Date: 20221125
  Transmission Date: 20230112
  Serious: No
  Sender: FDA-Public Use
  Company Number: 2022A365271

PATIENT
  Age: 28178 Day
  Sex: Female
  Weight: 38.6 kg

DRUGS (1)
  1. SYMBICORT [Suspect]
     Active Substance: BUDESONIDE\FORMOTEROL FUMARATE DIHYDRATE
     Indication: Chronic obstructive pulmonary disease
     Dosage: 160/4.5MCG 2 PUFFS TWICE A DAY
     Route: 055

REACTIONS (7)
  - Feeling abnormal [Unknown]
  - Body height decreased [Unknown]
  - Weight abnormal [Unknown]
  - Product dose omission issue [Unknown]
  - Intentional device misuse [Unknown]
  - Device malfunction [Unknown]
  - Nervousness [Unknown]

NARRATIVE: CASE EVENT DATE: 20221028
